FAERS Safety Report 14134137 (Version 1)
Quarter: 2017Q4

REPORT INFORMATION
  Report Type: Spontaneous
  Country: US (occurrence: None)
  Receive Date: 20171027
  Receipt Date: 20171027
  Transmission Date: 20180321
  Serious: Yes (Hospitalization)
  Sender: FDA-Public Use
  Company Number: None

PATIENT
  Age: 52 Year
  Sex: Male
  Weight: 100.24 kg

DRUGS (1)
  1. TECHNETIUM TC-99M MPI MDP [Suspect]
     Active Substance: TECHNETIUM TC-99M MEDRONATE
     Indication: CARDIAC STRESS TEST
     Route: 042
     Dates: start: 20170915, end: 20170915

REACTIONS (8)
  - Paraesthesia [None]
  - Nausea [None]
  - Hyperhidrosis [None]
  - Presyncope [None]
  - Cardio-respiratory arrest [None]
  - Rash [None]
  - Hypotension [None]
  - Vomiting [None]

NARRATIVE: CASE EVENT DATE: 20170915
